FAERS Safety Report 5498454-5 (Version None)
Quarter: 2007Q4

REPORT INFORMATION
  Report Type: 
  Country: None (occurrence: None)
  Receive Date: 20071024
  Receipt Date: 20071012
  Transmission Date: 20080405
  Serious: Yes (Hospitalization)
  Sender: FDA-Public Use
  Company Number: 2007BI021834

PATIENT
  Age: 42 Year
  Sex: Female

DRUGS (2)
  1. NATALIZUMAB [Suspect]
     Indication: MULTIPLE SCLEROSIS
     Dosage: 300 MG; QM; IV
     Route: 030
     Dates: start: 20070911
  2. AVONEX [Concomitant]

REACTIONS (3)
  - BRADYPHRENIA [None]
  - CONFUSIONAL STATE [None]
  - NAUSEA [None]
